FAERS Safety Report 10062388 (Version 1)
Quarter: 2014Q2

REPORT INFORMATION
  Report Type: Spontaneous
  Country: US (occurrence: US)
  Receive Date: 20140407
  Receipt Date: 20140407
  Transmission Date: 20141212
  Serious: No
  Sender: FDA-Public Use
  Company Number: US-PFIZER INC-2014093711

PATIENT
  Age: 67 Year
  Sex: Male

DRUGS (4)
  1. INLYTA [Suspect]
     Indication: RENAL CANCER
     Dosage: 5 MG, UNK
  2. GABAPENTIN [Concomitant]
     Dosage: UNK
  3. POTASSIUM CHLORIDE [Concomitant]
     Dosage: UNK
  4. LYRICA [Concomitant]
     Dosage: UNK

REACTIONS (3)
  - Stomatitis [Unknown]
  - Abnormal faeces [Unknown]
  - Fatigue [Unknown]
